FAERS Safety Report 11503794 (Version 1)
Quarter: 2015Q3

REPORT INFORMATION
  Report Type: Spontaneous
  Country: US (occurrence: US)
  Receive Date: 20150914
  Receipt Date: 20150914
  Transmission Date: 20151125
  Serious: No
  Sender: FDA-Public Use
  Company Number: US-ELI_LILLY_AND_COMPANY-US201509004424

PATIENT
  Sex: Female

DRUGS (7)
  1. BYDUREON [Concomitant]
     Active Substance: EXENATIDE
  2. LEVEMIR [Concomitant]
     Active Substance: INSULIN DETEMIR
  3. METHOTREXATE [Concomitant]
     Active Substance: METHOTREXATE
  4. CELEBREX [Concomitant]
     Active Substance: CELECOXIB
  5. HUMALOG [Suspect]
     Active Substance: INSULIN LISPRO
     Indication: DIABETES MELLITUS
     Dosage: UNK UNK, PRN
     Route: 065
     Dates: start: 2014
  6. HUMALOG [Suspect]
     Active Substance: INSULIN LISPRO
     Dosage: UNK UNK, PRN
     Route: 065
     Dates: start: 2014
  7. CYMBALTA [Concomitant]
     Active Substance: DULOXETINE HYDROCHLORIDE

REACTIONS (1)
  - Blood glucose increased [Unknown]
